FAERS Safety Report 17114689 (Version 1)
Quarter: 2019Q4

REPORT INFORMATION
  Report Type: Spontaneous
  Country: US (occurrence: US)
  Receive Date: 20191112
  Receipt Date: 20191112
  Transmission Date: 20200122
  Serious: No
  Sender: FDA-Public Use
  Company Number: None

PATIENT
  Age: 57 Year
  Sex: Male

DRUGS (1)
  1. MAVYRET [Suspect]
     Active Substance: GLECAPREVIR\PIBRENTASVIR
     Indication: CHRONIC HEPATITIS C
     Dosage: ?          OTHER DOSE:100/40MG;?
     Route: 048
     Dates: start: 201910

REACTIONS (2)
  - Fatigue [None]
  - Product dose omission [None]

NARRATIVE: CASE EVENT DATE: 20191112
